FAERS Safety Report 4609693-7 (Version None)
Quarter: 2005Q1

REPORT INFORMATION
  Report Type: 
  Country: None (occurrence: None)
  Receive Date: 20050314
  Receipt Date: 20050308
  Transmission Date: 20050727
  Serious: Yes (Life-Threatening, Disabling)
  Sender: FDA-Public Use
  Company Number: 2005AP01543

PATIENT
  Age: 71 Year
  Sex: Female

DRUGS (1)
  1. OMEPRAL [Suspect]
     Dosage: 20 MG DAILY PO
     Route: 048
     Dates: start: 20050201, end: 20050219

REACTIONS (3)
  - LEUKOPENIA [None]
  - RENAL IMPAIRMENT [None]
  - THROMBOCYTOPENIA [None]
